FAERS Safety Report 7234686-3 (Version None)
Quarter: 2011Q1

REPORT INFORMATION
  Report Type: 
  Country: None (occurrence: None)
  Receive Date: 20110120
  Receipt Date: 20110114
  Transmission Date: 20110831
  Serious: No
  Sender: FDA-Public Use
  Company Number: US-BIOGENIDEC-2011BI001962

PATIENT
  Sex: Female

DRUGS (5)
  1. WELLBUTRIN [Concomitant]
     Indication: ANXIETY
     Dates: start: 20090101
  2. TYSABRI [Suspect]
     Route: 042
     Dates: start: 20061016, end: 20070416
  3. HIGH BLOOD PRESSURE MEDICATION (NOS) [Concomitant]
     Indication: HYPERTENSION
  4. CHOLESTEROL MEDICATION (NOS) [Concomitant]
     Indication: BLOOD CHOLESTEROL
  5. TYSABRI [Suspect]
     Indication: MULTIPLE SCLEROSIS
     Route: 042
     Dates: start: 20091113

REACTIONS (7)
  - MUSCLE TIGHTNESS [None]
  - HEARING IMPAIRED [None]
  - PRURITUS [None]
  - MEMORY IMPAIRMENT [None]
  - BURNING SENSATION [None]
  - BONE PAIN [None]
  - SUBCUTANEOUS NODULE [None]
